FAERS Safety Report 24963249 (Version 1)
Quarter: 2025Q1

REPORT INFORMATION
  Report Type: Spontaneous
  Country: US (occurrence: US)
  Receive Date: 20250213
  Receipt Date: 20250213
  Transmission Date: 20250409
  Serious: No
  Sender: VERRICA PHARMACEUTICALS
  Company Number: US-VERRICA PHARMACEUTICALS INC.-2024VER000066

PATIENT
  Age: 3 Year
  Sex: Male

DRUGS (1)
  1. YCANTH [Suspect]
     Active Substance: CANTHARIDIN
     Indication: Molluscum contagiosum
     Route: 061
     Dates: start: 2024

REACTIONS (1)
  - Application site vesicles [Unknown]

NARRATIVE: CASE EVENT DATE: 20240101
